FAERS Safety Report 21764621 (Version 3)
Quarter: 2023Q2

REPORT INFORMATION
  Report Type: Report from Study
  Country: US (occurrence: US)
  Receive Date: 20221222
  Receipt Date: 20230615
  Transmission Date: 20230721
  Serious: Yes (Other)
  Sender: FDA-Public Use
  Company Number: US-ABBVIE-22K-163-4389354-00

PATIENT
  Age: 73 Year
  Sex: Female

DRUGS (3)
  1. SKYRIZI [Suspect]
     Active Substance: RISANKIZUMAB-RZAA
     Indication: Psoriasis
     Route: 058
     Dates: start: 202304
  2. SKYRIZI [Suspect]
     Active Substance: RISANKIZUMAB-RZAA
     Indication: Psoriasis
     Route: 058
     Dates: start: 20210205
  3. SKYRIZI [Suspect]
     Active Substance: RISANKIZUMAB-RZAA
     Route: 058
     Dates: start: 202301

REACTIONS (12)
  - Road traffic accident [Recovering/Resolving]
  - Burning sensation [Unknown]
  - Erythema [Unknown]
  - Rash pruritic [Unknown]
  - Multiple fractures [Recovering/Resolving]
  - Off label use [Unknown]
  - Pruritus [Recovering/Resolving]
  - Skin disorder [Not Recovered/Not Resolved]
  - Pain [Unknown]
  - Eczema [Unknown]
  - Illness [Unknown]
  - Rash papular [Unknown]

NARRATIVE: CASE EVENT DATE: 20220301
